FAERS Safety Report 9954767 (Version 2)
Quarter: 2014Q1

REPORT INFORMATION
  Report Type: Report from Study
  Country: US (occurrence: US)
  Receive Date: 20140304
  Receipt Date: 20140304
  Transmission Date: 20141002
  Serious: Yes (Other)
  Sender: FDA-Public Use
  Company Number: US-ABBVIE-13P-163-1073864-00

PATIENT
  Sex: Female

DRUGS (12)
  1. HUMIRA [Suspect]
     Indication: PSORIASIS
     Dates: start: 20130109, end: 20130109
  2. METFORMIN [Concomitant]
     Indication: DIABETES MELLITUS
  3. GLIMEPIRIDE [Concomitant]
     Indication: DIABETES MELLITUS
  4. CARVEDILOL [Concomitant]
     Indication: BLOOD PRESSURE INCREASED
  5. CARVEDILOL [Concomitant]
     Indication: CARDIAC FAILURE
  6. FUROSEMIDE [Concomitant]
     Indication: PRODUCT USED FOR UNKNOWN INDICATION
  7. NIFEDIPINE [Concomitant]
     Indication: CARDIAC FAILURE
  8. NIFEDIPINE [Concomitant]
     Indication: BLOOD PRESSURE INCREASED
  9. ASA [Concomitant]
     Indication: CARDIAC FAILURE
  10. ASA [Concomitant]
     Indication: BLOOD PRESSURE INCREASED
  11. PRAVASTATIN [Concomitant]
     Indication: CARDIAC FAILURE
  12. PRAVASTATIN [Concomitant]
     Indication: BLOOD PRESSURE INCREASED

REACTIONS (2)
  - Cataract [Unknown]
  - Tooth infection [Recovered/Resolved]
